FAERS Safety Report 10072081 (Version 2)
Quarter: 2014Q2

REPORT INFORMATION
  Report Type: Spontaneous
  Country: VE (occurrence: None)
  Receive Date: 20140409
  Receipt Date: 20140508
  Transmission Date: 20141212
  Serious: Yes (Other)
  Sender: FDA-Public Use
  Company Number: 2014MPI00345

PATIENT
  Age: 42 Year
  Sex: Female
  Weight: 72 kg

DRUGS (4)
  1. BRENTUXIMAB VEDOTIN [Suspect]
     Indication: HODGKIN^S DISEASE
     Dosage: 100 MG, UNK (1 CYCLE EACH 3 WEEKS), INTRAVENOUS
     Route: 042
     Dates: start: 20131221
  2. HARMONES [Concomitant]
  3. ESOMEPRAZOLE (ESOMEPRAZOLE) [Concomitant]
  4. IRON [Concomitant]

REACTIONS (3)
  - Leukopenia [None]
  - Headache [None]
  - Pruritus [None]
